FAERS Safety Report 7890055-4 (Version None)
Quarter: 2011Q4

REPORT INFORMATION
  Report Type: 
  Country: None (occurrence: None)
  Receive Date: 20111103
  Receipt Date: 20111026
  Transmission Date: 20120403
  Serious: Yes (Other)
  Sender: FDA-Public Use
  Company Number: US-US-EMD SERONO, INC.-7092189

PATIENT
  Sex: Female

DRUGS (3)
  1. IBUPROFEN [Suspect]
     Indication: HEADACHE
  2. IBUPROFEN [Suspect]
     Indication: PAIN IN EXTREMITY
  3. REBIF [Suspect]
     Indication: PRODUCT USED FOR UNKNOWN INDICATION
     Route: 058
     Dates: start: 20090708

REACTIONS (4)
  - GASTRIC ULCER [None]
  - PAIN IN EXTREMITY [None]
  - PRURITUS GENERALISED [None]
  - HEADACHE [None]
